FAERS Safety Report 12280331 (Version 5)
Quarter: 2016Q2

REPORT INFORMATION
  Report Type: Spontaneous
  Country: US (occurrence: US)
  Receive Date: 20160419
  Receipt Date: 20160627
  Transmission Date: 20160815
  Serious: Yes (Other)
  Sender: FDA-Public Use
  Company Number: US-HORIZON-ACT-0092-2016

PATIENT
  Age: 25 Year
  Sex: Male

DRUGS (1)
  1. ACTIMMUNE [Suspect]
     Active Substance: INTERFERON GAMMA-1B
     Indication: OSTEOPETROSIS
     Dosage: 100 ?G THREE TIMES WEEKLY

REACTIONS (6)
  - Pain [Recovered/Resolved]
  - Therapy cessation [Unknown]
  - Foot fracture [Not Recovered/Not Resolved]
  - Influenza like illness [Recovered/Resolved]
  - Foot deformity [Not Recovered/Not Resolved]
  - Fall [Unknown]

NARRATIVE: CASE EVENT DATE: 201603
